FAERS Safety Report 21436597 (Version 1)
Quarter: 2022Q4

REPORT INFORMATION
  Report Type: Spontaneous
  Country: US (occurrence: US)
  Receive Date: 20221010
  Receipt Date: 20221010
  Transmission Date: 20230113
  Serious: Yes (Other)
  Sender: FDA-Public Use
  Company Number: US-PFIZER INC-202201206934

PATIENT
  Age: 40 Year
  Sex: Male

DRUGS (4)
  1. BENEFIX [Suspect]
     Active Substance: COAGULATION FACTOR IX RECOMBINANT HUMAN\ISOPROPYL ALCOHOL
     Indication: Factor IX deficiency
     Dosage: 8000 IU, AS NEEDED (INFUSE 8000 UNITS (+/-10%))
     Route: 042
  2. FLUOXETINE HYDROCHLORIDE [Concomitant]
     Active Substance: FLUOXETINE HYDROCHLORIDE
     Dosage: UNK
  3. QUINIDINE SULFATE [Concomitant]
     Active Substance: QUINIDINE SULFATE
     Dosage: UNK
  4. HUMIRA [Concomitant]
     Active Substance: ADALIMUMAB
     Dosage: UNK

REACTIONS (1)
  - Tongue haemorrhage [Unknown]
